FAERS Safety Report 14402238 (Version 2)
Quarter: 2018Q1

REPORT INFORMATION
  Report Type: Spontaneous
  Country: US (occurrence: US)
  Receive Date: 20180117
  Receipt Date: 20180122
  Transmission Date: 20180509
  Serious: Yes (Hospitalization, Other)
  Sender: FDA-Public Use
  Company Number: US-PFIZER INC-2018018213

PATIENT
  Age: 55 Year
  Sex: Female

DRUGS (13)
  1. METOPROLOL. [Concomitant]
     Active Substance: METOPROLOL
     Dosage: UNK
     Route: 065
  2. ADRENALINE [Suspect]
     Active Substance: EPINEPHRINE
     Indication: CARDIAC FAILURE ACUTE
     Dosage: 600 UG, UNK
     Route: 040
  3. CALCIUM CHLORIDE. [Suspect]
     Active Substance: CALCIUM CHLORIDE
     Indication: CARDIAC FAILURE ACUTE
     Dosage: 500 MG, UNK
     Route: 040
  4. ASPIRIN /00346701/ [Concomitant]
     Active Substance: ASCORBIC ACID\ASPIRIN
     Dosage: UNK
  5. FERROUS SULFATE. [Concomitant]
     Active Substance: FERROUS SULFATE
     Dosage: UNK
  6. WARFARIN [Concomitant]
     Active Substance: WARFARIN
     Dosage: UNK
  7. NOREPINEPHRINE BITARTRATE. [Suspect]
     Active Substance: NOREPINEPHRINE BITARTRATE
     Indication: CARDIAC FAILURE ACUTE
     Dosage: STARTED AT AN UNSPECIFIED DOSE AND THEN THE INFUSION RATE INCREASED TO 0.1 MICROG/KG/MIN
     Route: 042
  8. VASOPRESSIN. [Suspect]
     Active Substance: VASOPRESSIN
     Dosage: INFUSION RATE INCREASED TO 0.1 U/HOUR
     Route: 042
  9. LEVOTHYROXINE. [Concomitant]
     Active Substance: LEVOTHYROXINE
     Dosage: UNK
     Route: 065
  10. PROTAMINE SULFATE. [Suspect]
     Active Substance: PROTAMINE SULFATE
     Indication: HAEMOSTASIS
     Dosage: 100 MG, UNK
  11. VASOPRESSIN. [Suspect]
     Active Substance: VASOPRESSIN
     Indication: CARDIAC FAILURE ACUTE
     Dosage: 12 IU, UNK
     Route: 040
  12. PANTOPRAZOLE [Concomitant]
     Active Substance: PANTOPRAZOLE
     Dosage: UNK
  13. ADRENALINE [Suspect]
     Active Substance: EPINEPHRINE
     Dosage: INFUSION RATE INCREASED TO 0.1 MICROG/KG/MIN
     Route: 042

REACTIONS (1)
  - Arteriospasm coronary [Recovered/Resolved]
